FAERS Safety Report 7370546-5 (Version None)
Quarter: 2011Q1

REPORT INFORMATION
  Report Type: 
  Country: None (occurrence: None)
  Receive Date: 20110323
  Receipt Date: 20110318
  Transmission Date: 20110831
  Serious: Yes (Other)
  Sender: FDA-Public Use
  Company Number: US-BAYER-2011-024872

PATIENT
  Sex: Male

DRUGS (1)
  1. ALEVE (CAPLET) [Suspect]
     Indication: MUSCLE STRAIN

REACTIONS (4)
  - OCULAR HYPERAEMIA [None]
  - MOUTH ULCERATION [None]
  - PHOTOPHOBIA [None]
  - PHARYNGEAL ULCERATION [None]
